FAERS Safety Report 5628436-1 (Version None)
Quarter: 2008Q1

REPORT INFORMATION
  Report Type: 
  Country: None (occurrence: None)
  Receive Date: 20080215
  Receipt Date: 20080208
  Transmission Date: 20080703
  Serious: Yes (Life-Threatening, Hospitalization)
  Sender: FDA-Public Use
  Company Number: GB-PFIZER INC-2007107603

PATIENT
  Age: 60 Year
  Sex: Male

DRUGS (2)
  1. DOXAZOSIN MESYLATE [Suspect]
     Route: 048
  2. DILTIAZEM [Suspect]
     Dosage: DAILY DOSE:10080MG-FREQ:ONCE

REACTIONS (3)
  - CARDIOTOXICITY [None]
  - HYPOTENSION [None]
  - INTENTIONAL OVERDOSE [None]
